FAERS Safety Report 19970132 (Version 2)
Quarter: 2021Q4

REPORT INFORMATION
  Report Type: Report from Study
  Country: US (occurrence: US)
  Receive Date: 20211019
  Receipt Date: 20211202
  Transmission Date: 20220303
  Serious: Yes (Other)
  Sender: FDA-Public Use
  Company Number: US-BAYER-2021A227712

PATIENT
  Age: 49 Year
  Sex: Female

DRUGS (3)
  1. XOFIGO [Suspect]
     Active Substance: RADIUM RA-223 DICHLORIDE
     Indication: Hormone-refractory prostate cancer
     Dosage: 139.50 UCI, ONCE EVERY 28 DAYS
     Route: 042
     Dates: start: 20210806, end: 20210806
  2. XOFIGO [Suspect]
     Active Substance: RADIUM RA-223 DICHLORIDE
     Indication: Hormone-refractory prostate cancer
     Dosage: UNK
  3. XOFIGO [Suspect]
     Active Substance: RADIUM RA-223 DICHLORIDE
     Indication: Hormone-refractory prostate cancer
     Dosage: 139.50 UCI, ONCE EVERY 28 DAYS
     Route: 042
     Dates: start: 20211008, end: 20211008

REACTIONS (2)
  - Platelet count decreased [None]
  - Laboratory test abnormal [None]
